FAERS Safety Report 5064404-9 (Version None)
Quarter: 2006Q3

REPORT INFORMATION
  Report Type: 
  Country: None (occurrence: None)
  Receive Date: 20060728
  Receipt Date: 20060713
  Transmission Date: 20061208
  Serious: Yes (Hospitalization)
  Sender: FDA-Public Use
  Company Number: NL-BRISTOL-MYERS SQUIBB COMPANY-13442033

PATIENT
  Age: 52 Year
  Sex: Male
  Weight: 97 kg

DRUGS (11)
  1. CISPLATIN [Suspect]
     Indication: NON-SMALL CELL LUNG CANCER
     Route: 042
     Dates: start: 20060413, end: 20060621
  2. GEMCITABINE [Suspect]
     Indication: NON-SMALL CELL LUNG CANCER
     Route: 042
     Dates: start: 20060413, end: 20060621
  3. DAPSONE [Concomitant]
     Route: 048
     Dates: start: 19850101
  4. COZAAR [Concomitant]
     Route: 048
     Dates: start: 19900101
  5. ADALAT [Concomitant]
     Route: 048
     Dates: start: 20020101
  6. ACETAMINOPHEN [Concomitant]
     Route: 048
     Dates: start: 20060301
  7. PRIMPERAN TAB [Concomitant]
     Route: 048
     Dates: start: 20060301
  8. EMEND [Concomitant]
     Dates: start: 20060614, end: 20060616
  9. DEXAMETHASONE TAB [Concomitant]
     Route: 042
     Dates: start: 20060614, end: 20060617
  10. KYTRIL [Concomitant]
     Route: 042
     Dates: start: 20060621, end: 20060621
  11. EPREX [Concomitant]
     Route: 058
     Dates: start: 20060428

REACTIONS (1)
  - PERICARDIAL EFFUSION [None]
